FAERS Safety Report 4978183-4 (Version None)
Quarter: 2006Q2

REPORT INFORMATION
  Report Type: 
  Country: None (occurrence: None)
  Receive Date: 20060414
  Receipt Date: 20060411
  Transmission Date: 20061013
  Serious: Yes (Death, Hospitalization)
  Sender: FDA-Public Use
  Company Number: 163-21880-06030649

PATIENT
  Age: 72 Year
  Sex: Female

DRUGS (9)
  1. REVLIMID [Suspect]
     Indication: MYELODYSPLASTIC SYNDROME
     Dosage: 5 MG, DAILY, ORAL
     Route: 048
     Dates: start: 20060201, end: 20060314
  2. EXJADE [Concomitant]
  3. PREDNISONE TAB [Concomitant]
  4. EVISTA [Concomitant]
  5. NEURONTIN [Concomitant]
  6. ACTOS [Concomitant]
  7. OMEPRAZOLE [Concomitant]
  8. LORTAB [Concomitant]
  9. TUMS (CALCIUM CARBONATE) [Concomitant]

REACTIONS (9)
  - ARTHRALGIA [None]
  - DISEASE PROGRESSION [None]
  - GASTROINTESTINAL HAEMORRHAGE [None]
  - GINGIVAL BLEEDING [None]
  - HAEMORRHAGE [None]
  - PHARYNGEAL ULCERATION [None]
  - PURPURA [None]
  - THROMBOCYTOPENIA [None]
  - URINARY TRACT INFECTION [None]
